FAERS Safety Report 6438826-5 (Version None)
Quarter: 2009Q4

REPORT INFORMATION
  Report Type: 
  Country: None (occurrence: None)
  Receive Date: 20091113
  Receipt Date: 20091103
  Transmission Date: 20100525
  Serious: No
  Sender: FDA-Public Use
  Company Number: US-JNJFOC-20091101740

PATIENT
  Sex: Female
  Weight: 67.13 kg

DRUGS (4)
  1. DURAGESIC-100 [Suspect]
     Indication: PAIN
     Route: 062
     Dates: start: 20000101, end: 20091001
  2. LORTAB [Concomitant]
     Indication: PAIN
     Dosage: 5-300MG 3 TO4 TABLET AS NEEDED
     Route: 048
  3. CELEBREX [Concomitant]
     Indication: PAIN
     Route: 048
  4. KLONOPIN [Concomitant]
     Indication: PAIN
     Route: 048

REACTIONS (2)
  - INAPPROPRIATE SCHEDULE OF DRUG ADMINISTRATION [None]
  - PRE-EXISTING DISEASE [None]
